FAERS Safety Report 9691547 (Version 2)
Quarter: 2013Q4

REPORT INFORMATION
  Report Type: Report from Study
  Country: US (occurrence: US)
  Receive Date: 20131115
  Receipt Date: 20131115
  Transmission Date: 20140711
  Serious: Yes (Hospitalization, Other)
  Sender: FDA-Public Use
  Company Number: US-US-EMD SERONO, INC.-7231414

PATIENT
  Age: 27 Year
  Sex: Female

DRUGS (4)
  1. REBIF [Suspect]
     Indication: MULTIPLE SCLEROSIS
     Route: 058
     Dates: start: 20130603
  2. VITAMIN D                          /00107901/ [Concomitant]
     Indication: PRODUCT USED FOR UNKNOWN INDICATION
  3. KLONOPIN [Concomitant]
     Indication: ANXIETY
  4. SOMA [Concomitant]
     Indication: PAIN

REACTIONS (3)
  - Suicidal ideation [Recovered/Resolved]
  - Multiple sclerosis relapse [Recovering/Resolving]
  - Depression [Recovered/Resolved]
